FAERS Safety Report 13095715 (Version 5)
Quarter: 2018Q2

REPORT INFORMATION
  Report Type: Spontaneous
  Country: US (occurrence: US)
  Receive Date: 20170109
  Receipt Date: 20180420
  Transmission Date: 20180711
  Serious: Yes (Hospitalization)
  Sender: FDA-Public Use
  Company Number: US-BIOGEN-2017BI00338618

PATIENT
  Sex: Female

DRUGS (2)
  1. AVONEX [Suspect]
     Active Substance: INTERFERON BETA-1A
     Indication: MULTIPLE SCLEROSIS
     Route: 030
     Dates: start: 20031001, end: 2004
  2. AVONEX [Suspect]
     Active Substance: INTERFERON BETA-1A
     Route: 030
     Dates: start: 2004

REACTIONS (7)
  - Eyelid ptosis [Unknown]
  - Gait disturbance [Unknown]
  - Incontinence [Unknown]
  - Motor dysfunction [Not Recovered/Not Resolved]
  - Multiple sclerosis [Unknown]
  - Dehydration [Unknown]
  - Pollakiuria [Unknown]
